FAERS Safety Report 19286437 (Version 2)
Quarter: 2021Q2

REPORT INFORMATION
  Report Type: Spontaneous
  Country: TR (occurrence: TR)
  Receive Date: 20210521
  Receipt Date: 20210531
  Transmission Date: 20210717
  Serious: Yes (Other)
  Sender: FDA-Public Use
  Company Number: TR-SA-2021SA160364

PATIENT
  Age: 46 Year
  Sex: Female

DRUGS (1)
  1. AFLIBERCEPT [Suspect]
     Active Substance: AFLIBERCEPT
     Indication: RETINAL DRUSEN
     Dosage: 2 MG IN 0.05 ML
     Route: 031

REACTIONS (1)
  - Macular telangiectasia [Recovered/Resolved]
